FAERS Safety Report 23247298 (Version 2)
Quarter: 2024Q1

REPORT INFORMATION
  Report Type: Report from Study
  Country: US (occurrence: US)
  Receive Date: 20231130
  Receipt Date: 20240116
  Transmission Date: 20240410
  Serious: Yes (Other)
  Sender: FDA-Public Use
  Company Number: US-ALXN-A202309031AA

PATIENT
  Sex: Male

DRUGS (5)
  1. ULTOMIRIS [Suspect]
     Active Substance: RAVULIZUMAB-CWVZ
     Indication: Myasthenia gravis
     Dosage: UNK
     Route: 065
     Dates: start: 20230621
  2. PREDNISONE [Concomitant]
     Active Substance: PREDNISONE
     Indication: Product used for unknown indication
     Dosage: UNK
     Route: 065
  3. BUDESONIDE [Concomitant]
     Active Substance: BUDESONIDE
     Indication: Product used for unknown indication
     Dosage: UNK
     Route: 065
  4. LIPITOR [Concomitant]
     Active Substance: ATORVASTATIN CALCIUM
     Indication: Product used for unknown indication
     Dosage: UNK
     Route: 065
  5. GABAPENTIN [Concomitant]
     Active Substance: GABAPENTIN
     Indication: Product used for unknown indication
     Dosage: UNK
     Route: 065

REACTIONS (22)
  - Diabetes mellitus [Unknown]
  - Hypersensitivity [Not Recovered/Not Resolved]
  - Dropped head syndrome [Not Recovered/Not Resolved]
  - Vertigo [Unknown]
  - Dysarthria [Unknown]
  - Therapeutic product effect delayed [Unknown]
  - Diplopia [Recovering/Resolving]
  - Abdominal discomfort [Unknown]
  - Confusional state [Unknown]
  - Eye disorder [Unknown]
  - Gingival swelling [Unknown]
  - Wheezing [Unknown]
  - Dyspnoea [Unknown]
  - Lung disorder [Unknown]
  - Influenza [Unknown]
  - Dizziness [Unknown]
  - Asthenia [Recovering/Resolving]
  - Fatigue [Not Recovered/Not Resolved]
  - Back pain [Unknown]
  - Dehydration [Unknown]
  - Pollakiuria [Unknown]
  - Blood glucose abnormal [Unknown]
